FAERS Safety Report 4663767-3 (Version None)
Quarter: 2005Q2

REPORT INFORMATION
  Report Type: 
  Country: None (occurrence: None)
  Receive Date: 20050516
  Receipt Date: 20050504
  Transmission Date: 20051028
  Serious: Yes (Hospitalization)
  Sender: FDA-Public Use
  Company Number: 2004BI000244

PATIENT
  Age: 53 Year
  Sex: Female
  Weight: 49.8957 kg

DRUGS (5)
  1. AVONEX [Suspect]
     Indication: MULTIPLE SCLEROSIS
     Dosage: SEE IMAGE
     Route: 030
     Dates: start: 19990101, end: 20030101
  2. AVONEX [Suspect]
     Indication: MULTIPLE SCLEROSIS
     Dosage: 30 UG; QW; IM
     Route: 030
     Dates: start: 20030101, end: 20040819
  3. PROZAC [Concomitant]
  4. MECLOZINE HCL [Concomitant]
  5. CALCIUM GLUCONATE [Concomitant]

REACTIONS (6)
  - DIZZINESS [None]
  - FALL [None]
  - FEELING ABNORMAL [None]
  - FEMUR FRACTURE [None]
  - SENSORY DISTURBANCE [None]
  - UNEVALUABLE EVENT [None]
